FAERS Safety Report 16690239 (Version 1)
Quarter: 2019Q3

REPORT INFORMATION
  Report Type: Report from Study
  Country: US (occurrence: US)
  Receive Date: 20190809
  Receipt Date: 20190809
  Transmission Date: 20191004
  Serious: Yes (Hospitalization)
  Sender: FDA-Public Use
  Company Number: US-ELI_LILLY_AND_COMPANY-US201907016110

PATIENT
  Sex: Female

DRUGS (1)
  1. DULAGLUTIDE. [Suspect]
     Active Substance: DULAGLUTIDE
     Indication: PRODUCT USED FOR UNKNOWN INDICATION
     Dosage: UNK, WEEKLY (1/W)
     Route: 065
     Dates: start: 20190524

REACTIONS (7)
  - Pancreatic disorder [Unknown]
  - Gastrointestinal disorder [Unknown]
  - Fungal infection [Unknown]
  - Constipation [Unknown]
  - Gait disturbance [Unknown]
  - Abdominal pain [Unknown]
  - Pruritus [Unknown]

NARRATIVE: CASE EVENT DATE: 20190524
